FAERS Safety Report 4599395-8 (Version None)
Quarter: 2005Q1

REPORT INFORMATION
  Report Type: 
  Country: None (occurrence: None)
  Receive Date: 20050303
  Receipt Date: 20050303
  Transmission Date: 20050727
  Serious: No
  Sender: FDA-Public Use
  Company Number: None

PATIENT
  Age: 50 Year
  Sex: Male
  Weight: 70.3075 kg

DRUGS (2)
  1. LEVAQUIN [Suspect]
     Indication: SINUSITIS
     Dosage: 500 MG    ONCE PER DAY    ORAL
     Route: 048
     Dates: start: 20050203, end: 20050205
  2. LEVAQUIN [Suspect]
     Indication: UPPER RESPIRATORY TRACT INFECTION
     Dosage: 500 MG    ONCE PER DAY    ORAL
     Route: 048
     Dates: start: 20050203, end: 20050205

REACTIONS (4)
  - ASTHENIA [None]
  - EXTRASYSTOLES [None]
  - HEART RATE INCREASED [None]
  - LETHARGY [None]
